FAERS Safety Report 21209770 (Version 1)
Quarter: 2022Q3

REPORT INFORMATION
  Report Type: Spontaneous
  Country: US (occurrence: US)
  Receive Date: 20220813
  Receipt Date: 20220813
  Transmission Date: 20221027
  Serious: Yes (Other)
  Sender: FDA-Public Use
  Company Number: US-Accord-272402

PATIENT
  Age: 62 Year
  Sex: Female

DRUGS (9)
  1. MONTELUKAST SODIUM [Suspect]
     Active Substance: MONTELUKAST SODIUM
     Indication: Hypersensitivity
     Dosage: STRENGTH: 10 MG?ONLY ON DAY 2 OF TAKING
  2. OXYBUTYNIN CHLORIDE [Suspect]
     Active Substance: OXYBUTYNIN CHLORIDE
     Indication: Hypertonic bladder
  3. EPINEPHRINE [Suspect]
     Active Substance: EPINEPHRINE
     Indication: Angioedema
     Dosage: STRENGTH: 0.3/0-2
  4. METOPROLOL [Suspect]
     Active Substance: METOPROLOL
     Indication: Blood pressure measurement
  5. HYDROXYZINE [Suspect]
     Active Substance: HYDROXYZINE HYDROCHLORIDE
     Indication: Anxiety
     Dosage: STRENGTH: 10 MG
  6. FAMOTIDINE [Suspect]
     Active Substance: FAMOTIDINE
     Indication: Abdominal discomfort
     Dosage: STRENGTH: 20 MG
  7. CETIRIZINE [Concomitant]
     Active Substance: CETIRIZINE HYDROCHLORIDE
     Indication: Product used for unknown indication
  8. FISH OIL [Concomitant]
     Active Substance: FISH OIL
  9. VITAMINS NOS [Concomitant]
     Active Substance: VITAMINS
     Indication: Product used for unknown indication

REACTIONS (18)
  - Choking [Unknown]
  - Swollen tongue [Unknown]
  - Urticaria [Unknown]
  - Peripheral swelling [Unknown]
  - Pruritus [Unknown]
  - Fear [Unknown]
  - Poor quality sleep [Unknown]
  - Lip swelling [Unknown]
  - Dysphagia [Unknown]
  - Dyspnoea [Unknown]
  - Limb discomfort [Unknown]
  - Rash [Unknown]
  - Blister [Unknown]
  - Rash macular [Unknown]
  - Pain [Unknown]
  - Feeling hot [Unknown]
  - Panic attack [Unknown]
  - Contraindicated product prescribed [Unknown]
